FAERS Safety Report 4806016-5 (Version None)
Quarter: 2005Q4

REPORT INFORMATION
  Report Type: 
  Country: None (occurrence: None)
  Receive Date: 20051021
  Receipt Date: 20051018
  Transmission Date: 20060501
  Serious: Yes (Hospitalization, Other)
  Sender: FDA-Public Use
  Company Number: GB-GLAXOSMITHKLINE-B0397620A

PATIENT
  Age: 54 Year
  Sex: Female
  Weight: 49 kg

DRUGS (2)
  1. AUGMENTIN '125' [Suspect]
     Indication: PROPHYLAXIS
     Dosage: 1.2G PER DAY
     Route: 042
  2. AMOXICILLIN [Concomitant]
     Route: 048
     Dates: start: 20050401

REACTIONS (2)
  - BRONCHOSPASM [None]
  - ELECTROMECHANICAL DISSOCIATION [None]
